FAERS Safety Report 23218421 (Version 1)
Quarter: 2023Q4

REPORT INFORMATION
  Report Type: Spontaneous
  Country: BR (occurrence: BR)
  Receive Date: 20231122
  Receipt Date: 20231122
  Transmission Date: 20240110
  Serious: No
  Sender: FDA-Public Use
  Company Number: BR-SCALL-2022-AMR-181682

PATIENT
  Age: 43 Year
  Sex: Male

DRUGS (1)
  1. DUTASTERIDE [Suspect]
     Active Substance: DUTASTERIDE
     Indication: Alopecia
     Dosage: 0.5 MG, 1 DF, QD
     Route: 065
     Dates: start: 2022

REACTIONS (3)
  - Oral discomfort [Fatal]
  - Wrong technique in product usage process [Fatal]
  - Product complaint [Fatal]

NARRATIVE: CASE EVENT DATE: 20221204
